FAERS Safety Report 6962603-X (Version None)
Quarter: 2010Q3

REPORT INFORMATION
  Report Type: 
  Country: None (occurrence: None)
  Receive Date: 20100831
  Receipt Date: 20100825
  Transmission Date: 20110219
  Serious: Yes (Death, Hospitalization, Other)
  Sender: FDA-Public Use
  Company Number: 2009US003266

PATIENT
  Age: 55 Year
  Sex: Female
  Weight: 158 kg

DRUGS (1)
  1. AMEVIVE [Suspect]
     Indication: PSORIASIS
     Dosage: 7.5 MG WEEKLY IV NOS
     Route: 042
     Dates: start: 20030416, end: 20030703

REACTIONS (11)
  - CANDIDIASIS [None]
  - DEVICE RELATED INFECTION [None]
  - DIABETES MELLITUS [None]
  - ENTEROCOCCAL INFECTION [None]
  - MENTAL STATUS CHANGES [None]
  - OBESITY SURGERY [None]
  - PNEUMONIA KLEBSIELLA [None]
  - POST PROCEDURAL COMPLICATION [None]
  - STAPHYLOCOCCAL INFECTION [None]
  - URINARY INCONTINENCE [None]
  - URINARY TRACT INFECTION [None]
